FAERS Safety Report 22321938 (Version 1)
Quarter: 2023Q2

REPORT INFORMATION
  Report Type: Spontaneous
  Country: US (occurrence: US)
  Receive Date: 20230516
  Receipt Date: 20230516
  Transmission Date: 20230721
  Serious: No
  Sender: FDA-Public Use
  Company Number: US-GSKCCFUS-Case-01698388_AE-95860

PATIENT
  Sex: Female

DRUGS (1)
  1. VENTOLIN HFA [Suspect]
     Active Substance: ALBUTEROL SULFATE
     Indication: Seasonal allergy
     Dosage: 18 G, Z, PRN
     Route: 055

REACTIONS (5)
  - Gastrooesophageal reflux disease [Unknown]
  - Panic attack [Unknown]
  - Dyspnoea [Unknown]
  - Cough [Unknown]
  - Wrong technique in device usage process [Unknown]
